FAERS Safety Report 17825599 (Version 1)
Quarter: 2020Q2

REPORT INFORMATION
  Report Type: Spontaneous
  Country: US (occurrence: US)
  Receive Date: 20200526
  Receipt Date: 20200526
  Transmission Date: 20200714
  Serious: Yes (Life-Threatening, Hospitalization, Other)
  Sender: FDA-Public Use
  Company Number: US-ASTRAZENECA-2020SE66843

PATIENT
  Age: 22503 Day
  Sex: Female
  Weight: 86.2 kg

DRUGS (19)
  1. HYDROMORPHONE [Concomitant]
     Active Substance: HYDROMORPHONE
  2. FLEXERIL [Concomitant]
     Active Substance: CYCLOBENZAPRINE HYDROCHLORIDE
  3. COZAAR [Concomitant]
     Active Substance: LOSARTAN POTASSIUM
  4. FLONASE [Concomitant]
     Active Substance: FLUTICASONE PROPIONATE
  5. AUGMENTIN [Concomitant]
     Active Substance: AMOXICILLIN\CLAVULANATE POTASSIUM
  6. COMPAZINE [Concomitant]
     Active Substance: PROCHLORPERAZINE MALEATE
  7. MONODOX [Concomitant]
     Active Substance: DOXYCYCLINE
  8. NARDIL [Concomitant]
     Active Substance: PHENELZINE SULFATE
  9. APRESOLINE HYDROCHLORIDE [Concomitant]
     Active Substance: HYDRALAZINE HYDROCHLORIDE
  10. GLUCOPHAGE [Concomitant]
     Active Substance: METFORMIN HYDROCHLORIDE
  11. CLINDAMYCIN. [Concomitant]
     Active Substance: CLINDAMYCIN
  12. KLOR-CON [Concomitant]
     Active Substance: POTASSIUM CHLORIDE
  13. FARXIGA [Suspect]
     Active Substance: DAPAGLIFLOZIN PROPANEDIOL
     Indication: TYPE 2 DIABETES MELLITUS
     Route: 048
     Dates: start: 20180518
  14. ZOFRAN [Concomitant]
     Active Substance: ONDANSETRON HYDROCHLORIDE
  15. CELEBREX [Concomitant]
     Active Substance: CELECOXIB
  16. DEMEROL [Concomitant]
     Active Substance: MEPERIDINE HYDROCHLORIDE
  17. ZOSYN [Concomitant]
     Active Substance: PIPERACILLIN SODIUM\TAZOBACTAM SODIUM
  18. MIDAZOLAM. [Concomitant]
     Active Substance: MIDAZOLAM
  19. LIPITOR [Concomitant]
     Active Substance: ATORVASTATIN CALCIUM

REACTIONS (6)
  - Fournier^s gangrene [Unknown]
  - Vulval abscess [Unknown]
  - Necrotising soft tissue infection [Unknown]
  - Cellulitis [Unknown]
  - Systemic inflammatory response syndrome [Unknown]
  - Sepsis [Unknown]

NARRATIVE: CASE EVENT DATE: 20181217
